FAERS Safety Report 18122312 (Version 6)
Quarter: 2021Q1

REPORT INFORMATION
  Report Type: Spontaneous
  Country: RO (occurrence: RO)
  Receive Date: 20200807
  Receipt Date: 20210111
  Transmission Date: 20210419
  Serious: Yes (Hospitalization, Other)
  Sender: FDA-Public Use
  Company Number: RO-AUROBINDO-AUR-APL-2020-037653

PATIENT
  Age: 56 Year
  Sex: Female

DRUGS (14)
  1. CLOPIDOGREL [Suspect]
     Active Substance: CLOPIDOGREL BISULFATE
     Indication: THROMBOSIS PROPHYLAXIS
  2. ARIXTRA [Suspect]
     Active Substance: FONDAPARINUX SODIUM
     Indication: EMBOLISM VENOUS
     Dosage: 7.5 MILLIGRAM, ONCE A DAY
     Route: 065
  3. ASPIRIN. [Suspect]
     Active Substance: ASPIRIN
     Indication: ACUTE MYOCARDIAL INFARCTION
     Dosage: UNK
     Route: 065
  4. DIPYRIDAMOLE. [Concomitant]
     Active Substance: DIPYRIDAMOLE
     Indication: PRODUCT USED FOR UNKNOWN INDICATION
     Dosage: UNK
  5. CLOPIDOGREL [Suspect]
     Active Substance: CLOPIDOGREL BISULFATE
     Indication: ACUTE MYOCARDIAL INFARCTION
     Dosage: UNK
     Route: 065
  6. DABIGATRAN [Suspect]
     Active Substance: DABIGATRAN
     Dosage: 150 MILLIGRAM, TWO TIMES A DAY
     Route: 065
  7. PRADAXA [Suspect]
     Active Substance: DABIGATRAN ETEXILATE MESYLATE
     Indication: THROMBOSIS PROPHYLAXIS
  8. ASPIRIN. [Suspect]
     Active Substance: ASPIRIN
     Indication: THROMBOSIS PROPHYLAXIS
  9. CLEXANE [Suspect]
     Active Substance: ENOXAPARIN SODIUM
     Indication: PRODUCT USED FOR UNKNOWN INDICATION
     Dosage: UNK
     Route: 065
  10. PRADAXA [Suspect]
     Active Substance: DABIGATRAN ETEXILATE MESYLATE
     Indication: ACUTE MYOCARDIAL INFARCTION
     Dosage: 150 MILLIGRAM, TWO TIMES A DAY
     Route: 048
  11. ARIXTRA [Suspect]
     Active Substance: FONDAPARINUX SODIUM
     Indication: THROMBOCYTOPENIA
     Dosage: 2.5 MILLIGRAM, ONCE A DAY
     Route: 065
  12. DABIGATRAN [Suspect]
     Active Substance: DABIGATRAN
     Indication: THROMBOSIS PROPHYLAXIS
     Dosage: 150 MILLIGRAM, TWO TIMES A DAY
     Route: 016
  13. ELTROMBOPAG [Suspect]
     Active Substance: ELTROMBOPAG
     Indication: IMMUNE THROMBOCYTOPENIA
     Dosage: UNK
     Route: 065
  14. HEPARIN [Suspect]
     Active Substance: HEPARIN SODIUM
     Indication: DEEP VEIN THROMBOSIS
     Dosage: UNK
     Route: 042

REACTIONS (10)
  - Deep vein thrombosis [Recovered/Resolved]
  - Angina pectoris [Recovered/Resolved]
  - Uterine haemorrhage [Recovered/Resolved]
  - Labelled drug-drug interaction medication error [Unknown]
  - Menorrhagia [Recovered/Resolved]
  - Thrombosis [Recovered/Resolved]
  - Pulmonary embolism [Recovered/Resolved]
  - Thrombocytopenia [Recovering/Resolving]
  - Drug ineffective [Unknown]
  - Off label use [Unknown]
